FAERS Safety Report 10015030 (Version 1)
Quarter: 2014Q1

REPORT INFORMATION
  Report Type: Spontaneous
  Country: FR (occurrence: FR)
  Receive Date: 20140317
  Receipt Date: 20140317
  Transmission Date: 20141002
  Serious: Yes (Hospitalization)
  Sender: FDA-Public Use
  Company Number: FR-009507513-1403FRA004964

PATIENT
  Age: 59 Year
  Sex: Female

DRUGS (3)
  1. VICTRELIS [Suspect]
     Indication: HEPATITIS C
     Dosage: 800 MG, TID
     Dates: start: 20111221, end: 20120102
  2. VIRAFERONPEG [Suspect]
     Indication: HEPATITIS C
     Dosage: 80 MICROGRAM, QW
     Dates: start: 20111117, end: 20120102
  3. REBETOL [Suspect]
     Indication: HEPATITIS C
     Dosage: 800 MG, QD
     Dates: start: 20111117, end: 20120102

REACTIONS (1)
  - Epistaxis [Recovered/Resolved]
